FAERS Safety Report 7077606 (Version 2)
Quarter: 2014Q2

REPORT INFORMATION
  Report Type: Spontaneous
  Country: US (occurrence: None)
  Receive Date: 20090803
  Receipt Date: 20140509
  Transmission Date: 20141212
  Serious: Yes (Other)
  Sender: FDA-Public Use
  Company Number: 2009S1005911

PATIENT
  Sex: Female

DRUGS (9)
  1. SODIUM PHOSPHATE, DIBASIC [Suspect]
     Indication: COLONOSCOPY
     Dosage: PO
     Route: 048
     Dates: start: 20070817
  2. LANTUS (INSULIN GLARGINE) [Concomitant]
  3. HUMALOG (INSULIN LSIPRO) [Concomitant]
  4. SYNTHROID (LEVOTHYROXINE SODIUM) [Concomitant]
  5. BABY ASPIRIN (ACETYSALICYLIC ACID) [Concomitant]
  6. LOVASTATIN (LOVASTATIN) [Concomitant]
  7. CALCIUM (CALCIUM) [Concomitant]
  8. VITAMIN D (VITAMIN D NOS) [Concomitant]
  9. PRILOSEC [Suspect]
     Indication: GASTROOESOPHAGEAL REFLUX DISEASE
     Dates: start: 200705, end: 200803

REACTIONS (9)
  - Renal failure chronic [None]
  - Blood glucose fluctuation [None]
  - Dyspnoea [None]
  - Palpitations [None]
  - Haemoglobin decreased [None]
  - Renal failure acute [None]
  - Cough [None]
  - Gastrooesophageal reflux disease [None]
  - Urinary tract infection [None]
